FAERS Safety Report 5634262-X (Version None)
Quarter: 2008Q1

REPORT INFORMATION
  Report Type: 
  Country: None (occurrence: None)
  Receive Date: 20080131
  Receipt Date: 20071120
  Transmission Date: 20080703
  Serious: Yes (Other)
  Sender: FDA-Public Use
  Company Number: 162502USA

PATIENT
  Age: 52 Year
  Sex: Female
  Weight: 82.5547 kg

DRUGS (6)
  1. COPAXONE [Suspect]
     Indication: MULTIPLE SCLEROSIS
     Dosage: 20 MG, SUBCUTANEOUS
     Route: 058
     Dates: start: 20011101, end: 20071101
  2. ESCITALOPRAM OXALATE [Concomitant]
  3. THYROID REPLACEMENT MEDICATION [Concomitant]
  4. HYDROXYZINE [Concomitant]
  5. BIRTH CONATROL PILLS-NORESTIN [Concomitant]
  6. OESTRANORM [Concomitant]

REACTIONS (1)
  - BREAST CANCER IN SITU [None]
